FAERS Safety Report 23803816 (Version 1)
Quarter: 2024Q2

REPORT INFORMATION
  Report Type: Spontaneous
  Country: DE (occurrence: DE)
  Receive Date: 20240501
  Receipt Date: 20240501
  Transmission Date: 20240716
  Serious: Yes (Other)
  Sender: FDA-Public Use
  Company Number: DE-MEDAC-2024000455

PATIENT
  Age: 81 Year
  Sex: Male

DRUGS (4)
  1. ANAGRELIDE [Interacting]
     Active Substance: ANAGRELIDE
     Indication: Product used for unknown indication
     Dosage: 0.5 MILLIGRAM, BID (TAKEN IN THE MORNING AND IN THE EVENING)
     Route: 065
  2. OMEPRAZOLE [Interacting]
     Active Substance: OMEPRAZOLE
     Indication: Product used for unknown indication
     Dosage: UNK,OCCASIONALLY TAKEN DUE TO REFLUX.
     Route: 065
  3. HYDROXYUREA [Interacting]
     Active Substance: HYDROXYUREA
     Indication: Thrombocytosis
     Dosage: UNK UNK, QD, (TAKEN AT LUNCHTIME)
     Route: 048
     Dates: start: 2018
  4. HYDROXYUREA [Interacting]
     Active Substance: HYDROXYUREA
     Dosage: 4 DOSAGE FORM, QD (4 TABLETS/DAY  )
     Route: 048
     Dates: start: 2023

REACTIONS (3)
  - Platelet count increased [Not Recovered/Not Resolved]
  - Drug interaction [Not Recovered/Not Resolved]
  - Drug ineffective [Not Recovered/Not Resolved]

NARRATIVE: CASE EVENT DATE: 20240101
